FAERS Safety Report 6927800-8 (Version None)
Quarter: 2010Q3

REPORT INFORMATION
  Report Type: 
  Country: None (occurrence: None)
  Receive Date: 20100817
  Receipt Date: 20100805
  Transmission Date: 20110219
  Serious: Yes (Other)
  Sender: FDA-Public Use
  Company Number: JP-PFIZER INC-2010098710

PATIENT
  Age: 36 Year
  Sex: Female

DRUGS (5)
  1. ZITHROMAC SR [Suspect]
     Indication: COUGH
     Dosage: 2 G, SINGLE
     Dates: start: 20100731, end: 20100731
  2. LASTET [Concomitant]
     Indication: UTERINE CANCER
  3. MUCODYNE [Concomitant]
     Indication: COUGH
     Dosage: 6 TABLETS
  4. CISDYNE [Concomitant]
     Indication: COUGH
     Dosage: 6 TABLETS
  5. HOKUNALIN [Concomitant]
     Indication: COUGH
     Route: 062

REACTIONS (2)
  - OEDEMA [None]
  - RENAL FAILURE ACUTE [None]
